FAERS Safety Report 9698037 (Version 1)
Quarter: 2013Q4

REPORT INFORMATION
  Report Type: Spontaneous
  Country: CH (occurrence: None)
  Receive Date: 20131118
  Receipt Date: 20131118
  Transmission Date: 20140711
  Serious: Yes (Hospitalization)
  Sender: FDA-Public Use
  Company Number: 20130632

PATIENT
  Age: 50 Year
  Sex: Female

DRUGS (2)
  1. FERINJECT [Suspect]
     Indication: ANAEMIA
     Route: 041
     Dates: start: 20130704, end: 20130704
  2. VITEX AGNUSCASTUS EXTRACT [Concomitant]

REACTIONS (6)
  - Abdominal pain [None]
  - Defaecation urgency [None]
  - Fall [None]
  - Loss of consciousness [None]
  - Syncope [None]
  - Amnesia [None]
